FAERS Safety Report 6645570-8 (Version None)
Quarter: 2010Q1

REPORT INFORMATION
  Report Type: 
  Country: None (occurrence: None)
  Receive Date: 20100323
  Receipt Date: 20100305
  Transmission Date: 20100710
  Serious: No
  Sender: FDA-Public Use
  Company Number: 2009BI038330

PATIENT
  Age: 33 Year
  Sex: Female

DRUGS (2)
  1. TYSABRI [Suspect]
     Indication: MULTIPLE SCLEROSIS
     Route: 042
     Dates: start: 20090116, end: 20100115
  2. AVONEX [Concomitant]
     Indication: MULTIPLE SCLEROSIS
     Dates: start: 20090101

REACTIONS (4)
  - DRUG INEFFECTIVE [None]
  - GAIT DISTURBANCE [None]
  - MUSCULOSKELETAL STIFFNESS [None]
  - POOR VENOUS ACCESS [None]
